FAERS Safety Report 21050969 (Version 1)
Quarter: 2022Q3

REPORT INFORMATION
  Report Type: Spontaneous
  Country: IT (occurrence: IT)
  Receive Date: 20220707
  Receipt Date: 20220707
  Transmission Date: 20221026
  Serious: Yes (Hospitalization)
  Sender: FDA-Public Use
  Company Number: IT-TEVA-2022-IT-2052202

PATIENT

DRUGS (2)
  1. PALIPERIDONE [Interacting]
     Active Substance: PALIPERIDONE
     Indication: Major depression
     Dosage: DEFINED DAILY DOSE: 6MG
     Route: 065
  2. VENLAFAXINE [Interacting]
     Active Substance: VENLAFAXINE HYDROCHLORIDE
     Indication: Major depression
     Route: 065

REACTIONS (2)
  - Muscle rigidity [Unknown]
  - Drug interaction [Unknown]
